FAERS Safety Report 14723038 (Version 1)
Quarter: 2018Q2

REPORT INFORMATION
  Report Type: Report from Study
  Country: CN (occurrence: CN)
  Receive Date: 20180405
  Receipt Date: 20180405
  Transmission Date: 20180711
  Serious: Yes (Other)
  Sender: FDA-Public Use
  Company Number: PHHY2017CN132929

PATIENT
  Age: 45 Year
  Sex: Male

DRUGS (2)
  1. MYFORTIC [Suspect]
     Active Substance: MYCOPHENOLATE SODIUM
     Indication: IMMUNOSUPPRESSANT DRUG THERAPY
     Dosage: 900 MG, UNK
     Route: 048
     Dates: start: 20160819
  2. MYFORTIC [Suspect]
     Active Substance: MYCOPHENOLATE SODIUM
     Indication: RENAL TRANSPLANT
     Dosage: 1260 MG, UNK
     Route: 048
     Dates: start: 20160715, end: 20160818

REACTIONS (6)
  - Cough [Recovered/Resolved]
  - Blood uric acid increased [Recovered/Resolved]
  - Urinary tract infection [Recovered/Resolved]
  - Liver injury [Not Recovered/Not Resolved]
  - Hyperlipidaemia [Not Recovered/Not Resolved]
  - Lung infection [Not Recovered/Not Resolved]

NARRATIVE: CASE EVENT DATE: 20160717
